FAERS Safety Report 10897175 (Version 2)
Quarter: 2015Q1

REPORT INFORMATION
  Report Type: Spontaneous
  Country: CA (occurrence: CA)
  Receive Date: 20150309
  Receipt Date: 20150327
  Transmission Date: 20150721
  Serious: Yes (Life-Threatening, Hospitalization, Other)
  Sender: FDA-Public Use
  Company Number: CA-SA-2015SA024738

PATIENT
  Age: 86 Year
  Sex: Female

DRUGS (11)
  1. CALCITROL [Concomitant]
     Active Substance: CALCITRIOL
     Dosage: MON, WED, FRIDAY MORNINGS
  2. VITAMIN D [Concomitant]
     Active Substance: CHOLECALCIFEROL
  3. METOPROLOL [Concomitant]
     Active Substance: METOPROLOL
  4. AMLODIPINE [Concomitant]
     Active Substance: AMLODIPINE BESYLATE
  5. INDAPAMIDE. [Concomitant]
     Active Substance: INDAPAMIDE
  6. RISEDRONATE [Concomitant]
     Active Substance: RISEDRONATE SODIUM
     Dosage: EVERY MONDAY WITH BREAKFAST
  7. VITAMIN D/CALCIUM [Concomitant]
     Dosage: DOSE: 600MG-4000 IU AT BED TIME
  8. VITAMIN D3 [Concomitant]
     Active Substance: CHOLECALCIFEROL
     Dosage: EVERY MORNING
  9. WARFARIN [Concomitant]
     Active Substance: WARFARIN
  10. FERRLECIT [Suspect]
     Active Substance: SODIUM FERRIC GLUCONATE COMPLEX
     Indication: MINERAL SUPPLEMENTATION
     Route: 042
     Dates: start: 20141117, end: 20141117
  11. ATORVASTATIN [Concomitant]
     Active Substance: ATORVASTATIN

REACTIONS (12)
  - Nausea [Unknown]
  - Acute coronary syndrome [Recovered/Resolved]
  - Confusional state [Unknown]
  - Hyperhidrosis [Unknown]
  - Erythema [Unknown]
  - Hypotension [Unknown]
  - Acute myocardial infarction [Recovered/Resolved]
  - Dizziness [Unknown]
  - Loss of consciousness [Recovered/Resolved]
  - Abdominal pain [Unknown]
  - Chest pain [Unknown]
  - Pallor [Unknown]

NARRATIVE: CASE EVENT DATE: 20141117
